FAERS Safety Report 12511362 (Version 1)
Quarter: 2016Q2

REPORT INFORMATION
  Report Type: Spontaneous
  Country: FR (occurrence: FR)
  Receive Date: 20160629
  Receipt Date: 20160629
  Transmission Date: 20160815
  Serious: Yes (Hospitalization, Other)
  Sender: FDA-Public Use
  Company Number: FR-ASTRAZENECA-2016SE69535

PATIENT
  Age: 78 Year
  Sex: Female
  Weight: 56 kg

DRUGS (6)
  1. ATACAND [Suspect]
     Active Substance: CANDESARTAN CILEXETIL
     Route: 048
     Dates: start: 20160601, end: 20160603
  2. CAPTEA [Suspect]
     Active Substance: CAPTOPRIL\HYDROCHLOROTHIAZIDE
     Dosage: 50MG/25MG A DAY
     Route: 048
     Dates: end: 20160603
  3. LEVOTHYROX [Concomitant]
     Active Substance: LEVOTHYROXINE
     Dosage: LTERNATING DOSE OF 50MG AND 75MG
  4. TANAKAN [Concomitant]
     Active Substance: GINKGO
  5. ATACAND [Suspect]
     Active Substance: CANDESARTAN CILEXETIL
     Route: 048
     Dates: end: 20160531
  6. AZILECT [Concomitant]
     Active Substance: RASAGILINE MESYLATE
     Dosage: 1.0MG UNKNOWN

REACTIONS (5)
  - Asthenia [Recovered/Resolved]
  - Blood pressure increased [Unknown]
  - Hypochloraemia [Recovered/Resolved]
  - Hyponatraemia [Recovered/Resolved]
  - Vertigo [Recovered/Resolved]

NARRATIVE: CASE EVENT DATE: 2016
